FAERS Safety Report 25756955 (Version 1)
Quarter: 2025Q3

REPORT INFORMATION
  Report Type: Spontaneous
  Country: US (occurrence: None)
  Receive Date: 20250903
  Receipt Date: 20250903
  Transmission Date: 20251021
  Serious: Yes (Death)
  Sender: FDA-CTU
  Company Number: None

PATIENT
  Age: 47 Year
  Sex: Male
  Weight: 70.31 kg

DRUGS (1)
  1. COBENFY [Suspect]
     Active Substance: TROSPIUM CHLORIDE\XANOMELINE

REACTIONS (2)
  - Dysphagia [None]
  - Volvulus [None]
